FAERS Safety Report 5090091-X (Version None)
Quarter: 2006Q3

REPORT INFORMATION
  Report Type: 
  Country: None (occurrence: None)
  Receive Date: 20060801
  Receipt Date: 20060206
  Transmission Date: 20061208
  Serious: Yes (Hospitalization)
  Sender: FDA-Public Use
  Company Number: OMPQ-PR-0602S-0093

PATIENT
  Age: 19 Year
  Sex: Female

DRUGS (1)
  1. OMNIPAQUE 140 [Suspect]
     Indication: APPENDICITIS
     Dosage: 100 ML, SINGLE DOSE, IV
     Route: 042
     Dates: start: 20060131, end: 20060131

REACTIONS (1)
  - HYPERSENSITIVITY [None]
